FAERS Safety Report 8130576-2 (Version None)
Quarter: 2012Q1

REPORT INFORMATION
  Report Type: 
  Country: None (occurrence: None)
  Receive Date: 20120211
  Receipt Date: 20120206
  Transmission Date: 20120608
  Serious: Yes (Other)
  Sender: FDA-Public Use
  Company Number: US-VERTEX PHARMACEUTICALS INC.-AE-2012-001888

PATIENT
  Sex: Female
  Weight: 58.112 kg

DRUGS (6)
  1. ALPRAZOLAM [Concomitant]
     Indication: SLEEP DISORDER
  2. INCIVEK [Suspect]
     Indication: HEPATITIS C
     Route: 048
     Dates: start: 20120125
  3. PEGASYS [Concomitant]
     Indication: HEPATITIS C
     Dates: start: 20120125
  4. RIBAVIRIN [Concomitant]
     Indication: HEPATITIS C
     Dates: start: 20120125
  5. CITALOPRAM HYDROBROMIDE [Concomitant]
     Indication: DEPRESSION
  6. MULTI-VITAMIN [Concomitant]
     Indication: MEDICAL DIET

REACTIONS (3)
  - RASH GENERALISED [None]
  - PROCTALGIA [None]
  - DIARRHOEA [None]
